FAERS Safety Report 18181902 (Version 4)
Quarter: 2020Q4

REPORT INFORMATION
  Report Type: Spontaneous
  Country: US (occurrence: US)
  Receive Date: 20200821
  Receipt Date: 20201027
  Transmission Date: 20210113
  Serious: Yes (Life-Threatening)
  Sender: FDA-Public Use
  Company Number: US-BIOGEN-2020BI00913790

PATIENT
  Age: 55 Year
  Sex: Female

DRUGS (1)
  1. TYSABRI [Suspect]
     Active Substance: NATALIZUMAB
     Indication: MULTIPLE SCLEROSIS
     Dosage: INFUSED OVER 1 HOUR
     Route: 042
     Dates: start: 20150513, end: 20190219

REACTIONS (1)
  - Breast cancer [Recovered/Resolved]

NARRATIVE: CASE EVENT DATE: 20190319
